FAERS Safety Report 7654058-7 (Version None)
Quarter: 2011Q3

REPORT INFORMATION
  Report Type: 
  Country: None (occurrence: None)
  Receive Date: 20110803
  Receipt Date: 20110725
  Transmission Date: 20111222
  Serious: Yes (Disabling)
  Sender: FDA-Public Use
  Company Number: PHHY2011US67802

PATIENT
  Age: 51 Year
  Sex: Female

DRUGS (2)
  1. FAMPRIDINE [Concomitant]
     Dosage: 10 MG, BID
  2. GILENYA [Suspect]
     Indication: MULTIPLE SCLEROSIS
     Dosage: 0.5 MG, QD
     Route: 048
     Dates: start: 20110201

REACTIONS (1)
  - JAW DISORDER [None]
